FAERS Safety Report 13493455 (Version 1)
Quarter: 2017Q2

REPORT INFORMATION
  Report Type: Spontaneous
  Country: US (occurrence: US)
  Receive Date: 20170427
  Receipt Date: 20170427
  Transmission Date: 20170830
  Serious: No
  Sender: FDA-Public Use
  Company Number: US-ROCHE-1433412

PATIENT
  Sex: Female

DRUGS (2)
  1. ERIVEDGE [Suspect]
     Active Substance: VISMODEGIB
     Indication: NEOPLASM SKIN
     Route: 065
     Dates: start: 20140404, end: 20140707
  2. ERIVEDGE [Suspect]
     Active Substance: VISMODEGIB
     Indication: BONE NEOPLASM

REACTIONS (2)
  - Weight decreased [Unknown]
  - Decreased appetite [Unknown]
